FAERS Safety Report 23940060 (Version 1)
Quarter: 2024Q2

REPORT INFORMATION
  Report Type: Report from Study
  Country: GR (occurrence: GR)
  Receive Date: 20240605
  Receipt Date: 20240605
  Transmission Date: 20240716
  Serious: Yes (Death, Life-Threatening)
  Sender: FDA-Public Use
  Company Number: GR-ABBVIE-5786723

PATIENT
  Age: 73 Year
  Sex: Male
  Weight: 75 kg

DRUGS (7)
  1. VENETOCLAX [Suspect]
     Active Substance: VENETOCLAX
     Indication: Acute myeloid leukaemia
     Route: 048
     Dates: start: 20230619, end: 20230925
  2. NITRONG [Concomitant]
     Active Substance: NITROGLYCERIN
     Indication: Hypertension
     Dosage: START DATE TEXT: UNKNOWN
     Route: 062
     Dates: end: 20240120
  3. Penrazol [Concomitant]
     Indication: Gastrooesophageal reflux disease
     Dosage: START DATE TEXT: UNKNOWN
     Route: 048
     Dates: end: 20240120
  4. DIOVAN [Concomitant]
     Active Substance: VALSARTAN
     Indication: Hypertension
     Dosage: START DATE TEXT: UNKNOWN
     Route: 048
     Dates: end: 20240120
  5. ROSUVASTATIN [Concomitant]
     Active Substance: ROSUVASTATIN
     Indication: Myocardial infarction
     Route: 048
     Dates: start: 2010, end: 20240120
  6. EZETIMIBE [Concomitant]
     Active Substance: EZETIMIBE
     Indication: Hypercholesterolaemia
     Dosage: START DATE TEXT: UNKNOWN
     Route: 048
     Dates: end: 20240120
  7. METOPROLOL [Concomitant]
     Active Substance: METOPROLOL
     Indication: Myocardial infarction
     Route: 048
     Dates: start: 2010, end: 20240120

REACTIONS (1)
  - Myocardial infarction [Fatal]

NARRATIVE: CASE EVENT DATE: 20240120
